FAERS Safety Report 5827574-8 (Version None)
Quarter: 2008Q3

REPORT INFORMATION
  Report Type: 
  Country: None (occurrence: None)
  Receive Date: 20080730
  Receipt Date: 20080723
  Transmission Date: 20090109
  Serious: Yes (Other)
  Sender: FDA-Public Use
  Company Number: US-BOEHRINGER INGELHEIM GMBH, GERMANY-2008-BP-11578BP

PATIENT
  Age: 71 Year
  Sex: Male

DRUGS (1)
  1. SPIRIVA [Suspect]
     Indication: EMPHYSEMA
     Route: 055
     Dates: start: 20070101

REACTIONS (2)
  - DRUG INEFFECTIVE [None]
  - PROSTATE CANCER [None]
